FAERS Safety Report 14767266 (Version 2)
Quarter: 2018Q2

REPORT INFORMATION
  Report Type: Report from Study
  Country: US (occurrence: US)
  Receive Date: 20180417
  Receipt Date: 20180523
  Transmission Date: 20180711
  Serious: Yes (Hospitalization, Other)
  Sender: FDA-Public Use
  Company Number: US-GILEAD-2018-0333206

PATIENT
  Age: 73 Year
  Sex: Male
  Weight: 95.5 kg

DRUGS (29)
  1. ADCIRCA [Concomitant]
     Active Substance: TADALAFIL
     Indication: PULMONARY ARTERIAL HYPERTENSION
     Dosage: 40 MG, QD
     Dates: start: 20180328
  2. POTASSIUM [Concomitant]
     Active Substance: POTASSIUM
  3. CLINDAMYCIN. [Concomitant]
     Active Substance: CLINDAMYCIN
  4. ALBUTEROL                          /00139501/ [Concomitant]
     Active Substance: ALBUTEROL
  5. POLYETHYLENE GLYCOL 3350. [Concomitant]
     Active Substance: POLYETHYLENE GLYCOL 3350
  6. OXYGEN. [Concomitant]
     Active Substance: OXYGEN
  7. AMBRISENTAN [Suspect]
     Active Substance: AMBRISENTAN
     Indication: PULMONARY ARTERIAL HYPERTENSION
     Dosage: 5 MG, QD
     Route: 048
     Dates: start: 20180127
  8. FINASTERIDE. [Concomitant]
     Active Substance: FINASTERIDE
  9. ASA [Concomitant]
     Active Substance: ASPIRIN
  10. APIXABAN [Concomitant]
     Active Substance: APIXABAN
  11. ACETAMINOPHEN + COD. PHOSP. [Concomitant]
     Active Substance: ACETAMINOPHEN\CODEINE PHOSPHATE
  12. LEVOTHYROXINE                      /00068002/ [Concomitant]
     Active Substance: LEVOTHYROXINE
  13. DONEPEZIL. [Concomitant]
     Active Substance: DONEPEZIL
  14. FUROSEMIDE. [Concomitant]
     Active Substance: FUROSEMIDE
  15. LEVOTHYROXINE. [Concomitant]
     Active Substance: LEVOTHYROXINE
  16. OMEPRAZOLE. [Concomitant]
     Active Substance: OMEPRAZOLE
  17. VITAMIN D3 [Concomitant]
     Active Substance: CHOLECALCIFEROL
  18. TORSEMIDE. [Concomitant]
     Active Substance: TORSEMIDE
  19. TUMS                               /00193601/ [Concomitant]
     Active Substance: CALCIUM CARBONATE\MAGNESIUM CARBONATE\MAGNESIUM TRISILICATE
  20. SAW PALMETTO                       /00833501/ [Concomitant]
     Active Substance: HERBALS\SAW PALMETTO
  21. NYSTATIN. [Concomitant]
     Active Substance: NYSTATIN
  22. SAW PALMETTO                       /00833501/ [Concomitant]
     Active Substance: HERBALS\SAW PALMETTO
  23. PREDNISONE. [Concomitant]
     Active Substance: PREDNISONE
  24. BENAZEPRIL + HIDROCLOROTIAZIDA GENERIS [Concomitant]
  25. ATORVASTATIN [Concomitant]
     Active Substance: ATORVASTATIN
  26. FINASTERIDE 1A PHARMA [Concomitant]
  27. TADALAFIL LAM [Concomitant]
  28. DOXYCYCLINE. [Concomitant]
     Active Substance: DOXYCYCLINE
  29. BENZONATATE. [Concomitant]
     Active Substance: BENZONATATE

REACTIONS (5)
  - Pneumonia [Unknown]
  - Oxygen saturation [Unknown]
  - Hypotension [Unknown]
  - Rash generalised [Unknown]
  - Deep vein thrombosis [Unknown]

NARRATIVE: CASE EVENT DATE: 20180402
